FAERS Safety Report 19251362 (Version 1)
Quarter: 2021Q2

REPORT INFORMATION
  Report Type: Report from Study
  Country: US (occurrence: US)
  Receive Date: 20210512
  Receipt Date: 20210512
  Transmission Date: 20210717
  Serious: No
  Sender: FDA-Public Use
  Company Number: NVSC2021US099848

PATIENT
  Age: 48 Year
  Sex: Female

DRUGS (1)
  1. GLEEVEC [Suspect]
     Active Substance: IMATINIB MESYLATE
     Indication: CHRONIC MYELOID LEUKAEMIA
     Dosage: UNK, QD
     Route: 048
     Dates: start: 2002, end: 2008

REACTIONS (5)
  - Asthenia [Recovered/Resolved]
  - Pain in extremity [Recovered/Resolved]
  - Bone pain [Recovered/Resolved]
  - Nausea [Recovered/Resolved]
  - Fluid retention [Recovered/Resolved]
